FAERS Safety Report 7285138-6 (Version None)
Quarter: 2011Q1

REPORT INFORMATION
  Report Type: 
  Country: None (occurrence: None)
  Receive Date: 20110210
  Receipt Date: 20110203
  Transmission Date: 20110831
  Serious: Yes (Death, Other)
  Sender: FDA-Public Use
  Company Number: PHHY2010JP43678

PATIENT
  Sex: Male
  Weight: 53 kg

DRUGS (12)
  1. ZYLORIC [Concomitant]
     Indication: MYELOFIBROSIS
     Dosage: 300 MG, UNK
     Route: 048
     Dates: start: 20090518, end: 20090901
  2. DOPAMINE HYDROCHLORIDE [Concomitant]
     Indication: MYELOFIBROSIS
     Dosage: 2 ML, UNK
     Route: 042
     Dates: start: 20090825, end: 20090901
  3. LASIX [Concomitant]
     Indication: MYELOFIBROSIS
     Dosage: 80 MG, UNK
     Dates: start: 20090518, end: 20090820
  4. EXJADE [Suspect]
     Dosage: 500MG
     Route: 048
     Dates: start: 20090723, end: 20090901
  5. GASTER D [Concomitant]
     Indication: MYELOFIBROSIS
     Dosage: 20 MG, UNK
     Route: 048
     Dates: start: 20090518, end: 20090901
  6. FOSMICIN S [Concomitant]
     Indication: MYELOFIBROSIS
     Dosage: 2 G, UNK
     Route: 042
     Dates: start: 20090827, end: 20090901
  7. EXJADE [Suspect]
     Dosage: 1000MG
     Route: 048
     Dates: start: 20090618, end: 20090711
  8. EXJADE [Suspect]
     Indication: IRON OVERLOAD
     Dosage: 1000 MG, UNK
     Route: 048
     Dates: start: 20090518, end: 20090528
  9. PURSENNID [Concomitant]
     Indication: MYELOFIBROSIS
     Dosage: 12 MG, UNK
     Route: 048
     Dates: start: 20090518, end: 20090901
  10. MYSLEE [Concomitant]
     Indication: MYELOFIBROSIS
     Dosage: 5 MG, UNK
     Route: 048
     Dates: start: 20090518, end: 20090901
  11. ALDACTONE [Concomitant]
     Indication: MYELOFIBROSIS
     Dosage: 50 MG, UNK
     Route: 048
     Dates: start: 20090820, end: 20090901
  12. PRIMOBOLAN [Concomitant]
     Indication: MYELOFIBROSIS
     Dosage: 25 MG, UNK
     Route: 048
     Dates: start: 20090518, end: 20090901

REACTIONS (5)
  - BLOOD LACTATE DEHYDROGENASE INCREASED [None]
  - HAEMATOCRIT DECREASED [None]
  - CARDIAC FAILURE CONGESTIVE [None]
  - HAEMOGLOBIN DECREASED [None]
  - WHITE BLOOD CELL COUNT INCREASED [None]
